FAERS Safety Report 20971773 (Version 2)
Quarter: 2022Q2

REPORT INFORMATION
  Report Type: Report from Study
  Country: US (occurrence: US)
  Receive Date: 20220616
  Receipt Date: 20220627
  Transmission Date: 20220721
  Serious: No
  Sender: FDA-Public Use
  Company Number: US-SA-SAC20220609000580

PATIENT
  Age: 75 Year
  Sex: Female

DRUGS (1)
  1. TERIFLUNOMIDE [Suspect]
     Active Substance: TERIFLUNOMIDE
     Indication: Multiple sclerosis
     Dosage: 14 MG, QD
     Route: 048
     Dates: start: 20220506

REACTIONS (8)
  - Pain in extremity [Unknown]
  - Lichen sclerosus [Unknown]
  - Condition aggravated [Unknown]
  - Dizziness [Unknown]
  - Back disorder [Unknown]
  - Fatigue [Unknown]
  - Acne [Unknown]
  - Asthenia [Unknown]

NARRATIVE: CASE EVENT DATE: 20220101
